FAERS Safety Report 4501521-3 (Version None)
Quarter: 2004Q4

REPORT INFORMATION
  Report Type: 
  Country: None (occurrence: None)
  Receive Date: 20041109
  Receipt Date: 20041029
  Transmission Date: 20050328
  Serious: Yes (Hospitalization)
  Sender: FDA-Public Use
  Company Number: 2004CG02201

PATIENT
  Age: 53 Year
  Sex: Male

DRUGS (3)
  1. OMEPRAZOLE [Suspect]
  2. TAZOCILLINE [Suspect]
  3. TARGOCID [Suspect]

REACTIONS (11)
  - ANAEMIA MACROCYTIC [None]
  - CHILLS [None]
  - DERMATITIS EXFOLIATIVE [None]
  - DIAPEDESIS [None]
  - EOSINOPHILIA [None]
  - ERYSIPELAS [None]
  - ERYTHEMA [None]
  - HAEMATURIA [None]
  - LEUKOPLAKIA [None]
  - PURPURA [None]
  - RASH MACULO-PAPULAR [None]
